FAERS Safety Report 22309150 (Version 2)
Quarter: 2023Q4

REPORT INFORMATION
  Report Type: Spontaneous
  Country: US (occurrence: US)
  Receive Date: 20230511
  Receipt Date: 20231024
  Transmission Date: 20240110
  Serious: Yes (Other)
  Sender: FDA-Public Use
  Company Number: US-AMNEAL PHARMACEUTICALS-2023-AMRX-01570

PATIENT
  Sex: Female

DRUGS (1)
  1. RYTARY [Suspect]
     Active Substance: CARBIDOPA\LEVODOPA
     Indication: Product used for unknown indication
     Dosage: TAKE 1 TABLET BY MOUTH ONCE DAILY TO START AND INCREASED TO 1 TABLET BY MOUTH THREE TIMES A DAY AS T
     Route: 048

REACTIONS (3)
  - Upper limb fracture [Unknown]
  - Staphylococcal infection [Unknown]
  - Product use issue [Unknown]
